FAERS Safety Report 8015625-4 (Version None)
Quarter: 2011Q4

REPORT INFORMATION
  Report Type: 
  Country: None (occurrence: None)
  Receive Date: 20111230
  Receipt Date: 20111220
  Transmission Date: 20120403
  Serious: Yes (Other)
  Sender: FDA-Public Use
  Company Number: JP-ASTRAZENECA-2011SE71492

PATIENT
  Age: 13527 Day
  Sex: Female
  Weight: 50 kg

DRUGS (5)
  1. XYLOCAINE [Suspect]
     Indication: ENDOSCOPY UPPER GASTROINTESTINAL TRACT
     Dosage: DOSE UNKNOWN
     Route: 049
     Dates: start: 20111121, end: 20111121
  2. FAMOTIDINE [Concomitant]
     Dosage: DOSE UNKNOWN
     Route: 065
     Dates: start: 20111121
  3. ANABOLIC STEROIDS AND PREPARATIONS [Concomitant]
     Dosage: DOSE UNKNOWN
     Route: 065
     Dates: start: 20111123
  4. ANTIHISTAMINES [Concomitant]
     Dosage: DOSE UNKNOWN
     Route: 065
     Dates: start: 20111121
  5. XYLOCAINE VISCOUS [Suspect]
     Indication: ENDOSCOPY UPPER GASTROINTESTINAL TRACT
     Route: 049
     Dates: start: 20111121, end: 20111121

REACTIONS (2)
  - OROPHARYNGEAL DISCOMFORT [None]
  - URTICARIA [None]
